FAERS Safety Report 8998382 (Version 1)
Quarter: 2013Q1

REPORT INFORMATION
  Report Type: Spontaneous
  Country: IT (occurrence: IT)
  Receive Date: 20130103
  Receipt Date: 20130103
  Transmission Date: 20140127
  Serious: Yes (Other)
  Sender: FDA-Public Use
  Company Number: IT-TEVA-377916ISR

PATIENT
  Age: 44 Year
  Sex: Female

DRUGS (1)
  1. AMIKACIN [Suspect]
     Indication: URINARY TRACT INFECTION
     Dosage: 1000 MILLIGRAM DAILY;
     Route: 030
     Dates: start: 20121104, end: 20121105

REACTIONS (2)
  - Rash macular [Recovering/Resolving]
  - Pruritus [Recovering/Resolving]
